FAERS Safety Report 6136880-1 (Version None)
Quarter: 2009Q1

REPORT INFORMATION
  Report Type: 
  Country: None (occurrence: None)
  Receive Date: 20090325
  Receipt Date: 20090319
  Transmission Date: 20090719
  Serious: Yes (Death)
  Sender: FDA-Public Use
  Company Number: TRP_06135_2009

PATIENT
  Sex: Female
  Weight: 88.905 kg

DRUGS (4)
  1. RIBASPHERE [Suspect]
     Indication: HEPATITIS C
     Dosage: (1000 MG, [600 MG QAM AND 400 MG QPM] ORAL)
     Route: 048
     Dates: start: 20090212
  2. PEGASYS [Suspect]
     Indication: HEPATITIS C
     Dosage: (180 MCG/0.5 ML SUBCUTANEOUS)
     Route: 058
     Dates: start: 20090212
  3. TRAMADOL [Concomitant]
  4. EFFEXOR XR [Concomitant]

REACTIONS (8)
  - ASTHENIA [None]
  - DIZZINESS [None]
  - EATING DISORDER [None]
  - NAUSEA [None]
  - OLIGODIPSIA [None]
  - REFUSAL OF TREATMENT BY PATIENT [None]
  - VISUAL IMPAIRMENT [None]
  - VOMITING [None]
